FAERS Safety Report 25471861 (Version 2)
Quarter: 2025Q3

REPORT INFORMATION
  Report Type: Spontaneous
  Country: US (occurrence: US)
  Receive Date: 20250624
  Receipt Date: 20250729
  Transmission Date: 20251020
  Serious: Yes (Other)
  Sender: NOVO NORDISK
  Company Number: US-NOVOPROD-1462023

PATIENT
  Age: 65 Year
  Sex: Male

DRUGS (1)
  1. OZEMPIC [Suspect]
     Active Substance: SEMAGLUTIDE
     Indication: Diabetes mellitus
     Dates: start: 202305, end: 202401

REACTIONS (16)
  - Neoplasm malignant [Unknown]
  - Metastases to heart [Unknown]
  - Colon cancer [Unknown]
  - Tooth infection [Unknown]
  - Metastases to liver [Unknown]
  - Cardiac valve disease [Unknown]
  - Malignant melanoma [Unknown]
  - Neuroendocrine carcinoma [Unknown]
  - Radiation injury [Unknown]
  - Jaundice [Unknown]
  - Blood pressure decreased [Unknown]
  - Frequent bowel movements [Unknown]
  - Asthenia [Unknown]
  - Decreased appetite [Unknown]
  - Weight decreased [Unknown]
  - Vomiting [Unknown]

NARRATIVE: CASE EVENT DATE: 20230101
